FAERS Safety Report 7978539-1 (Version None)
Quarter: 2011Q4

REPORT INFORMATION
  Report Type: 
  Country: None (occurrence: None)
  Receive Date: 20111214
  Receipt Date: 20111206
  Transmission Date: 20120403
  Serious: Yes (Other)
  Sender: FDA-Public Use
  Company Number: AT-JNJFOC-20111204102

PATIENT

DRUGS (32)
  1. RITUXIMAB [Suspect]
     Route: 065
  2. VINCRISTINE [Suspect]
     Route: 065
  3. RITUXIMAB [Suspect]
     Route: 065
  4. CYCLOPHOSPHAMIDE [Suspect]
     Indication: MANTLE CELL LYMPHOMA
     Route: 065
  5. DOXORUBICIN HCL [Suspect]
     Route: 042
  6. RITUXIMAB [Suspect]
     Indication: MANTLE CELL LYMPHOMA
     Route: 065
  7. RITUXIMAB [Suspect]
     Route: 065
  8. RITUXIMAB [Suspect]
     Route: 065
  9. PREDNISONE [Suspect]
     Route: 065
  10. CYCLOPHOSPHAMIDE [Suspect]
     Route: 065
  11. VINCRISTINE [Suspect]
     Route: 065
  12. PREDNISONE [Suspect]
     Route: 065
  13. DOXORUBICIN HCL [Suspect]
     Indication: MANTLE CELL LYMPHOMA
     Route: 042
  14. CYCLOPHOSPHAMIDE [Suspect]
     Route: 065
  15. VINCRISTINE [Suspect]
     Route: 065
  16. PREDNISONE [Suspect]
     Route: 065
  17. THALIDOMIDE [Suspect]
     Indication: MANTLE CELL LYMPHOMA
     Route: 065
  18. DOXORUBICIN HCL [Suspect]
     Route: 042
  19. CYCLOPHOSPHAMIDE [Suspect]
     Route: 065
  20. CYCLOPHOSPHAMIDE [Suspect]
     Route: 065
  21. VINCRISTINE [Suspect]
     Indication: MANTLE CELL LYMPHOMA
     Route: 065
  22. PREDNISONE [Suspect]
     Route: 065
  23. DALTEPARIN SODIUM [Concomitant]
     Indication: THROMBOSIS PROPHYLAXIS
     Route: 058
  24. DOXORUBICIN HCL [Suspect]
     Route: 042
  25. DOXORUBICIN HCL [Suspect]
     Route: 042
  26. RITUXIMAB [Suspect]
     Route: 065
  27. VINCRISTINE [Suspect]
     Route: 065
  28. PREDNISONE [Suspect]
     Indication: MANTLE CELL LYMPHOMA
     Route: 065
  29. DOXORUBICIN HCL [Suspect]
     Route: 042
  30. CYCLOPHOSPHAMIDE [Suspect]
     Route: 065
  31. VINCRISTINE [Suspect]
     Route: 065
  32. PREDNISONE [Suspect]
     Route: 065

REACTIONS (2)
  - PULMONARY EMBOLISM [None]
  - ATRIAL FIBRILLATION [None]
